FAERS Safety Report 19465737 (Version 16)
Quarter: 2021Q3

REPORT INFORMATION
  Report Type: Spontaneous
  Country: GB (occurrence: GB)
  Receive Date: 20210626
  Receipt Date: 20210914
  Transmission Date: 20211014
  Serious: Yes (Hospitalization, Disabling, Other)
  Sender: FDA-Public Use
  Company Number: GB-SUN PHARMACEUTICAL INDUSTRIES LTD-2021RR-302024

PATIENT
  Age: 8 Year
  Sex: Female
  Weight: 23.35 kg

DRUGS (44)
  1. AFINITOR [Suspect]
     Active Substance: EVEROLIMUS
     Dosage: 5 MG MONDAY/WEDNESDAY/FRIDAY AND 2.5 MG TUESDAY/THURSDAY/SATURDAY/SUNDAY
     Route: 048
     Dates: start: 20200213
  2. DEXAMETHASONE. [Suspect]
     Active Substance: DEXAMETHASONE
     Indication: PRODUCT USED FOR UNKNOWN INDICATION
     Dosage: UNK ()
     Route: 065
  3. DEXAMETHASONE. [Suspect]
     Active Substance: DEXAMETHASONE
     Dosage: 3.5 MILLIGRAM, DAILY
     Route: 048
     Dates: start: 20200212
  4. PARACETAMOL [Suspect]
     Active Substance: ACETAMINOPHEN
     Indication: PRODUCT USED FOR UNKNOWN INDICATION
     Dosage: UNK UNK, QD PM ()
     Route: 048
  5. VANDETANIB. [Suspect]
     Active Substance: VANDETANIB
     Indication: BRAIN STEM GLIOMA
     Dosage: 100 MG, QOD
     Route: 048
  6. COTRIMOXAZOLE [Concomitant]
     Active Substance: SULFAMETHOXAZOLE\TRIMETHOPRIM
     Route: 065
  7. RANITIDINE. [Suspect]
     Active Substance: RANITIDINE
     Indication: GASTROOESOPHAGEAL REFLUX DISEASE
     Dosage: 50 MG, BID
     Route: 048
  8. AFINITOR [Suspect]
     Active Substance: EVEROLIMUS
     Dosage: 5 MG MONDAY/WEDNESDAY/FRIDAY AND 2.5 MG TUESDAY/THURSDAY/SATURDAY/SUNDAY
     Route: 048
     Dates: start: 20200212
  9. VANDETANIB. [Suspect]
     Active Substance: VANDETANIB
     Dosage: 100 MG, QOD (65 MG/M2)
     Route: 048
     Dates: start: 20191018, end: 20200207
  10. VANDETANIB. [Suspect]
     Active Substance: VANDETANIB
     Dosage: 65 MG/M2, QD
     Route: 065
     Dates: start: 20191009, end: 20191014
  11. RANITIDINE. [Concomitant]
     Active Substance: RANITIDINE
     Indication: PRODUCT USED FOR UNKNOWN INDICATION
     Dosage: 50 MILLIGRAM, TWO TIMES A DAY
     Route: 065
     Dates: start: 20191018
  12. EVEROLIMUS. [Suspect]
     Active Substance: EVEROLIMUS
     Dosage: 5 MG M/W/F;
     Route: 048
     Dates: start: 20200212
  13. DEXAMETHASONE. [Suspect]
     Active Substance: DEXAMETHASONE
     Dosage: 1.6 MILLIGRAM, DAILY
     Route: 048
     Dates: start: 20200215, end: 20200221
  14. DEXAMETHASONE. [Suspect]
     Active Substance: DEXAMETHASONE
     Dosage: 3.5 MILLIGRAM, BID
     Route: 048
     Dates: start: 20200210
  15. EVEROLIMUS. [Suspect]
     Active Substance: EVEROLIMUS
     Dosage: 5 MG ON MONDAY, WEDNESDAY AND FRIDAY AND 2.5 MG ON TUESDAY, THURSDAY, SATURDAY AND SUNDAY ()
     Route: 048
     Dates: start: 20191001
  16. EVEROLIMUS. [Suspect]
     Active Substance: EVEROLIMUS
     Dosage: 2.5 MG, 1X/DAY TU/TH/SAT/SUN
     Route: 065
     Dates: start: 20200212
  17. AFINITOR [Suspect]
     Active Substance: EVEROLIMUS
     Dosage: 2.5 MG, ON TUESDAY, THURSDAY, SATURDAY AND SUNDAY
     Route: 048
     Dates: start: 20190718, end: 20200207
  18. LOPERAMIDE [Suspect]
     Active Substance: LOPERAMIDE
     Indication: DIARRHOEA
     Dosage: 2 MILLIGRAM, QID, 2 MG ONE CAPSULE UP TO FOUR TIMES A DAY
     Route: 065
  19. RANITIDINE. [Suspect]
     Active Substance: RANITIDINE
     Dosage: UNK
     Route: 048
  20. EVEROLIMUS. [Suspect]
     Active Substance: EVEROLIMUS
     Dosage: 5 MG ON MONDAY,WEDNESDAY AND FRIDAY AND 2.5 MG ON TUESDAY,THURSDAY,SATURDAY AND SUNDAY ()
     Route: 048
     Dates: start: 20190717, end: 20191014
  21. EVEROLIMUS. [Suspect]
     Active Substance: EVEROLIMUS
     Dosage: 5 MILLIGRAM, DAILY, MONDAY/WEDNESDAY/FRIDAY
     Route: 048
     Dates: start: 20210207
  22. EVEROLIMUS. [Suspect]
     Active Substance: EVEROLIMUS
     Dosage: 5 MG ON M/W/F AND 2.5 MG ON TU/TH/SAT/SUN
     Route: 048
     Dates: start: 20190717, end: 20191014
  23. LOPERAMIDE HYDROCHLORIDE. [Suspect]
     Active Substance: LOPERAMIDE HYDROCHLORIDE
     Indication: PRODUCT USED FOR UNKNOWN INDICATION
  24. DEXAMETHASONE. [Suspect]
     Active Substance: DEXAMETHASONE
     Dosage: 4.6 MILLIGRAM, UNK
     Route: 048
     Dates: start: 20200207, end: 20200221
  25. DEXAMETHASONE. [Concomitant]
     Active Substance: DEXAMETHASONE
     Indication: PRODUCT USED FOR UNKNOWN INDICATION
     Dosage: 4 MILLIGRAM, BID
     Route: 065
     Dates: start: 20191101, end: 20200221
  26. COTRIMOXAZOLE [Concomitant]
     Active Substance: SULFAMETHOXAZOLE\TRIMETHOPRIM
     Dosage: 720 MILLIGRAM, QD (360 MG, BID (7.5 ML) ON SATURDAYS
     Route: 048
  27. COTRIMOXAZOLE [Concomitant]
     Active Substance: SULFAMETHOXAZOLE\TRIMETHOPRIM
     Dosage: UNK
     Route: 065
  28. LANSOPRAZOLE. [Suspect]
     Active Substance: LANSOPRAZOLE
     Indication: PRODUCT USED FOR UNKNOWN INDICATION
     Dosage: UNK
     Route: 065
  29. AFINITOR [Suspect]
     Active Substance: EVEROLIMUS
     Dosage: 5 MG MONDAY/WEDNESDAY/FRIDAY AND 2.5 MG TUESDAY/THURSDAY/SATURDAY/SUNDAY
     Route: 048
     Dates: start: 20190717, end: 20200207
  30. DEXAMETHASONE. [Suspect]
     Active Substance: DEXAMETHASONE
     Dosage: 7 MILLIGRAM, QD (3.5 MG, BID)
     Route: 048
     Dates: start: 20200210
  31. VANDETANIB. [Suspect]
     Active Substance: VANDETANIB
     Dosage: 65 MG/M2, QD
     Route: 065
     Dates: start: 20200316, end: 20200420
  32. COTRIMOXAZOLE [Concomitant]
     Active Substance: SULFAMETHOXAZOLE\TRIMETHOPRIM
     Indication: PRODUCT USED FOR UNKNOWN INDICATION
     Dosage: 360 MG BD ON SAT/SUN ONLY
     Route: 065
  33. EVEROLIMUS. [Suspect]
     Active Substance: EVEROLIMUS
     Indication: BRAIN STEM GLIOMA
     Dosage: 5 MILLIGRAM, DAILY, 5MG MONDAY/WEDNESDAY/FRIDAY
     Route: 048
  34. VANDETANIB. [Suspect]
     Active Substance: VANDETANIB
     Dosage: 100 MG, QOD (65 MG/M2)
     Route: 048
     Dates: start: 20191009, end: 20191014
  35. VANDETANIB. [Suspect]
     Active Substance: VANDETANIB
     Dosage: 54 MILLIGRAM/SQ. METER, UNK
     Route: 048
     Dates: start: 20200212, end: 20200302
  36. VANDETANIB. [Suspect]
     Active Substance: VANDETANIB
     Dosage: 100 MG, QOD;
     Route: 048
     Dates: start: 20200212, end: 20200302
  37. DEXAMETHASONE. [Concomitant]
     Active Substance: DEXAMETHASONE
     Dosage: 0.5 MILLIGRAM, UNK
     Route: 065
     Dates: end: 20200221
  38. EVEROLIMUS. [Suspect]
     Active Substance: EVEROLIMUS
     Dosage: 2.5 MILLIGRAM, DAILY, TUESDAY/THURSDAY/SATURDAY/SUNDAY
     Route: 048
     Dates: start: 20200212
  39. EVEROLIMUS. [Suspect]
     Active Substance: EVEROLIMUS
     Dosage: 2.5 MG, 1X/DAY TU/TH/SAT/SUN
     Route: 048
     Dates: start: 20210207
  40. EVEROLIMUS. [Suspect]
     Active Substance: EVEROLIMUS
     Dosage: 2.5 MG ON TUESDAY, THURSDAY, SATURDAY AND SUNDAY
     Route: 048
     Dates: start: 20191001
  41. AFINITOR [Suspect]
     Active Substance: EVEROLIMUS
     Indication: PRODUCT USED FOR UNKNOWN INDICATION
     Dosage: 5 MG MONDAY/WEDNESDAY/FRIDAY AND 2.5 MG TUESDAY/THURSDAY/SATURDAY/SUNDAY
     Route: 048
  42. DEXAMETHASONE. [Suspect]
     Active Substance: DEXAMETHASONE
     Dosage: 9.2 MILLIGRAM, DAILY
     Route: 048
     Dates: start: 20200207, end: 20200221
  43. VANDETANIB. [Suspect]
     Active Substance: VANDETANIB
     Dosage: 65 MG/M2, QD
     Route: 065
     Dates: start: 20200212, end: 20200302
  44. COTRIMOXAZOLE [Concomitant]
     Active Substance: SULFAMETHOXAZOLE\TRIMETHOPRIM
     Route: 065

REACTIONS (35)
  - Facial paralysis [Recovered/Resolved]
  - Hypophagia [Not Recovered/Not Resolved]
  - Brain stem glioma [Not Recovered/Not Resolved]
  - Blood cholesterol increased [Recovered/Resolved]
  - Blood cholesterol increased [Not Recovered/Not Resolved]
  - Off label use [Unknown]
  - Blood triglycerides increased [Unknown]
  - Hypertension [Not Recovered/Not Resolved]
  - Gastrooesophageal reflux disease [Recovered/Resolved]
  - Flatulence [Recovered/Resolved]
  - Disease progression [Unknown]
  - Lymphocyte count decreased [Not Recovered/Not Resolved]
  - Neutrophil count decreased [Recovered/Resolved]
  - Stomatitis [Recovered/Resolved]
  - Ataxia [Unknown]
  - Blood creatinine increased [Recovered/Resolved]
  - Reflux gastritis [Recovered/Resolved]
  - Electrocardiogram QT prolonged [Recovered/Resolved]
  - Blood creatinine increased [Unknown]
  - Ataxia [Recovered/Resolved]
  - Hemiparesis [Unknown]
  - Hypophosphataemia [Recovered/Resolved]
  - White blood cell count decreased [Not Recovered/Not Resolved]
  - Abdominal distension [Recovered/Resolved]
  - Neutrophil count decreased [Recovered/Resolved]
  - Facial paralysis [Recovered/Resolved]
  - Ocular hyperaemia [Recovered/Resolved]
  - Myoclonus [Recovered/Resolved]
  - Product use in unapproved indication [Unknown]
  - Blood cholesterol increased [Recovered/Resolved]
  - Abdominal distension [Recovered/Resolved]
  - Facial paralysis [Unknown]
  - Alanine aminotransferase increased [Recovered/Resolved]
  - Brain stem glioma [Unknown]
  - Malignant neoplasm progression [Unknown]

NARRATIVE: CASE EVENT DATE: 20190111
